FAERS Safety Report 10822794 (Version 1)
Quarter: 2015Q1

REPORT INFORMATION
  Report Type: Report from Study
  Country: US (occurrence: US)
  Receive Date: 20150218
  Receipt Date: 20150218
  Transmission Date: 20150721
  Serious: No
  Sender: FDA-Public Use
  Company Number: US-ABBVIE-14K-163-1307503-00

PATIENT
  Age: 54 Year
  Sex: Female

DRUGS (1)
  1. HUMIRA [Suspect]
     Active Substance: ADALIMUMAB
     Indication: RHEUMATOID ARTHRITIS
     Route: 065
     Dates: start: 20140921

REACTIONS (13)
  - Tongue disorder [Recovering/Resolving]
  - Laryngeal disorder [Unknown]
  - Night sweats [Unknown]
  - Aphonia [Unknown]
  - Tremor [Recovered/Resolved]
  - Laryngeal oedema [Unknown]
  - Chronic obstructive pulmonary disease [Unknown]
  - Aphasia [Unknown]
  - Fibromyalgia [Unknown]
  - Cough [Unknown]
  - Sputum discoloured [Unknown]
  - Tremor [Unknown]
  - Tongue disorder [Recovering/Resolving]

NARRATIVE: CASE EVENT DATE: 2014
